FAERS Safety Report 8959469 (Version 2)
Quarter: 2013Q1

REPORT INFORMATION
  Report Type: Spontaneous
  Country: IT (occurrence: FR)
  Receive Date: 20121212
  Receipt Date: 20130130
  Transmission Date: 20140127
  Serious: Yes (Life-Threatening)
  Sender: FDA-Public Use
  Company Number: FR-FRI-1000040971

PATIENT
  Sex: Female

DRUGS (9)
  1. NEBIVOLOL [Suspect]
     Dosage: 2.5 MG
     Route: 048
     Dates: end: 20121121
  2. FLUDEX [Suspect]
     Dosage: 1.5 MG
     Route: 048
     Dates: end: 20121121
  3. LASILIX [Suspect]
     Dosage: 60 MG
     Route: 048
  4. GLUCOPHAGE [Suspect]
     Dosage: 1700 MG
     Route: 048
     Dates: end: 20121121
  5. COVERSYL [Suspect]
     Dosage: 2 MG
     Route: 048
     Dates: end: 20121121
  6. ZOCOR [Concomitant]
     Route: 048
  7. ASPEGIC [Concomitant]
     Route: 048
  8. CORDARONE [Concomitant]
     Route: 048
  9. SINTROM [Concomitant]
     Route: 048

REACTIONS (3)
  - Renal failure acute [Recovering/Resolving]
  - Lactic acidosis [Recovered/Resolved]
  - Hyperkalaemia [Recovered/Resolved]
